FAERS Safety Report 12805835 (Version 1)
Quarter: 2016Q4

REPORT INFORMATION
  Report Type: Spontaneous
  Country: US (occurrence: US)
  Receive Date: 20161003
  Receipt Date: 20161003
  Transmission Date: 20170207
  Serious: Yes (Other)
  Sender: FDA-Public Use
  Company Number: None

PATIENT
  Age: 9 Year
  Sex: Male
  Weight: 29.03 kg

DRUGS (1)
  1. KLONOPIN [Suspect]
     Active Substance: CLONAZEPAM
     Indication: SEVERE MYOCLONIC EPILEPSY OF INFANCY
     Dosage: 2.5 AM/MID DAY 2 PM + EXTRA 20 DOSES FOR 52 } 3 MIN OR 352 IN 6 HRS PO
     Route: 048

REACTIONS (4)
  - Drug intolerance [None]
  - Seizure [None]
  - Product substitution issue [None]
  - Condition aggravated [None]
